FAERS Safety Report 19960466 (Version 8)
Quarter: 2023Q2

REPORT INFORMATION
  Report Type: Spontaneous
  Country: JP (occurrence: JP)
  Receive Date: 20211015
  Receipt Date: 20230628
  Transmission Date: 20230721
  Serious: Yes (Hospitalization)
  Sender: FDA-Public Use
  Company Number: JP-ELI_LILLY_AND_COMPANY-JP202101005250

PATIENT
  Age: 7 Year
  Sex: Female
  Weight: 15.9 kg

DRUGS (47)
  1. ADCIRCA [Suspect]
     Active Substance: TADALAFIL
     Indication: Pulmonary arterial hypertension
     Dosage: 15 MG, DAILY
     Route: 065
     Dates: start: 20170125, end: 20180913
  2. ADCIRCA [Suspect]
     Active Substance: TADALAFIL
     Dosage: 16-17 MG PER DAY
     Route: 065
     Dates: start: 20180914, end: 20200519
  3. ADCIRCA [Suspect]
     Active Substance: TADALAFIL
     Dosage: UNK, UNKNOWN
     Route: 065
     Dates: start: 20200520
  4. UPTRAVI [Suspect]
     Active Substance: SELEXIPAG
     Indication: Pulmonary arterial hypertension
     Dosage: 0.06 MG, BID
     Route: 048
     Dates: start: 20180116, end: 20180220
  5. UPTRAVI [Suspect]
     Active Substance: SELEXIPAG
     Dosage: 0.24 MG, DAILY
     Route: 048
     Dates: start: 20180221, end: 20180320
  6. UPTRAVI [Suspect]
     Active Substance: SELEXIPAG
     Dosage: 0.36 MG, DAILY
     Route: 048
     Dates: start: 20180321, end: 20180417
  7. UPTRAVI [Suspect]
     Active Substance: SELEXIPAG
     Dosage: 0.48 MG, DAILY
     Route: 048
     Dates: start: 20180418, end: 20180515
  8. UPTRAVI [Suspect]
     Active Substance: SELEXIPAG
     Dosage: 0.3 MG, BID
     Route: 048
     Dates: start: 20180516, end: 20180612
  9. UPTRAVI [Suspect]
     Active Substance: SELEXIPAG
     Dosage: 0.36 MG, BID
     Route: 048
     Dates: start: 20180613, end: 20180710
  10. UPTRAVI [Suspect]
     Active Substance: SELEXIPAG
     Dosage: 0.42 MG, BID
     Route: 048
     Dates: start: 20180711, end: 20180814
  11. UPTRAVI [Suspect]
     Active Substance: SELEXIPAG
     Dosage: 0.48 MG, BID
     Route: 048
     Dates: start: 20180815, end: 20180913
  12. UPTRAVI [Suspect]
     Active Substance: SELEXIPAG
     Dosage: 0.512 MG, BID
     Route: 048
     Dates: start: 20180914, end: 20181016
  13. UPTRAVI [Suspect]
     Active Substance: SELEXIPAG
     Dosage: 0.544 MG, BID
     Route: 048
     Dates: start: 20181017, end: 20200519
  14. UPTRAVI [Suspect]
     Active Substance: SELEXIPAG
     Dosage: 0.576 MG, BID
     Route: 048
     Dates: start: 20200520, end: 20200827
  15. UPTRAVI [Suspect]
     Active Substance: SELEXIPAG
     Dosage: 0.608 MG, BID
     Route: 048
     Dates: start: 20200828
  16. OPSUMIT [Concomitant]
     Active Substance: MACITENTAN
     Indication: Pulmonary arterial hypertension
     Dosage: 3 MG, UNKNOWN
     Route: 065
     Dates: start: 20170321, end: 20180913
  17. OPSUMIT [Concomitant]
     Active Substance: MACITENTAN
     Dosage: UNK, UNKNOWN
     Route: 065
     Dates: start: 20180914, end: 20200519
  18. OPSUMIT [Concomitant]
     Active Substance: MACITENTAN
     Dosage: UNK, UNKNOWN
     Route: 065
     Dates: start: 20200520
  19. ENALAPRIL MALEATE [Concomitant]
     Active Substance: ENALAPRIL MALEATE
     Indication: Product used for unknown indication
     Dosage: 3 MG, UNKNOWN
     Route: 065
     Dates: start: 20170124, end: 20180913
  20. ENALAPRIL MALEATE [Concomitant]
     Active Substance: ENALAPRIL MALEATE
     Dosage: UNK, UNKNOWN
     Route: 065
     Dates: start: 20180914, end: 20191209
  21. ENALAPRIL MALEATE [Concomitant]
     Active Substance: ENALAPRIL MALEATE
     Dosage: 3.4 MG, UNKNOWN
     Route: 065
     Dates: start: 20191213, end: 20200519
  22. ENALAPRIL MALEATE [Concomitant]
     Active Substance: ENALAPRIL MALEATE
     Dosage: UNK, UNKNOWN
     Route: 065
     Dates: start: 20200520
  23. FUROSEMIDE [Concomitant]
     Active Substance: FUROSEMIDE
     Indication: Product used for unknown indication
     Dosage: 23 MG, UNKNOWN
     Route: 065
     Dates: start: 20160922, end: 20180913
  24. FUROSEMIDE [Concomitant]
     Active Substance: FUROSEMIDE
     Dosage: UNK, UNKNOWN
     Route: 065
     Dates: start: 20180914, end: 20191209
  25. FUROSEMIDE [Concomitant]
     Active Substance: FUROSEMIDE
     Dosage: 25 MG, DAILY
     Dates: start: 20191213, end: 20200519
  26. FUROSEMIDE [Concomitant]
     Active Substance: FUROSEMIDE
     Dosage: 27 MG, DAILY
     Dates: start: 20200520
  27. SPIRONOLACTONE [Concomitant]
     Active Substance: SPIRONOLACTONE
     Indication: Product used for unknown indication
     Dosage: 23 MG, UNKNOWN
     Route: 065
     Dates: start: 20161222, end: 20180913
  28. SPIRONOLACTONE [Concomitant]
     Active Substance: SPIRONOLACTONE
     Dosage: UNK, UNKNOWN
     Route: 065
     Dates: start: 20180914, end: 20191209
  29. SPIRONOLACTONE [Concomitant]
     Active Substance: SPIRONOLACTONE
     Dosage: 25 MG
     Dates: start: 20191213, end: 20200519
  30. SPIRONOLACTONE [Concomitant]
     Active Substance: SPIRONOLACTONE
     Dosage: 27 MG
     Dates: start: 20200520
  31. WARFARIN POTASSIUM [Concomitant]
     Active Substance: WARFARIN POTASSIUM
     Indication: Product used for unknown indication
     Dosage: 1.4 MG, UNKNOWN
     Route: 065
     Dates: start: 20161122, end: 20180913
  32. WARFARIN POTASSIUM [Concomitant]
     Active Substance: WARFARIN POTASSIUM
     Dosage: UNK, UNKNOWN
     Route: 065
     Dates: start: 20180914, end: 20190723
  33. WARFARIN POTASSIUM [Concomitant]
     Active Substance: WARFARIN POTASSIUM
     Dosage: 1.7 MG
     Dates: start: 20190724, end: 20200519
  34. WARFARIN POTASSIUM [Concomitant]
     Active Substance: WARFARIN POTASSIUM
     Dosage: UNK
     Dates: start: 20200520
  35. DIGOXIN [Concomitant]
     Active Substance: DIGOXIN
     Indication: Product used for unknown indication
     Dosage: 0.1 MG, UNKNOWN
     Route: 065
     Dates: start: 20160303, end: 20180913
  36. DIGOXIN [Concomitant]
     Active Substance: DIGOXIN
     Dosage: UNK, UNKNOWN
     Route: 065
     Dates: start: 20180914, end: 20191209
  37. DIGOXIN [Concomitant]
     Active Substance: DIGOXIN
     Dosage: 0.119 MG
     Dates: start: 20191213, end: 20200519
  38. DIGOXIN [Concomitant]
     Active Substance: DIGOXIN
     Dosage: UNK
     Dates: start: 20200520
  39. CARVEDILOL [Concomitant]
     Active Substance: CARVEDILOL
     Indication: Product used for unknown indication
     Dosage: 4.5 MG, UNKNOWN
     Route: 065
     Dates: start: 20161222, end: 20180913
  40. CARVEDILOL [Concomitant]
     Active Substance: CARVEDILOL
     Dosage: UNK, UNKNOWN
     Route: 065
     Dates: start: 20180914, end: 20190131
  41. CARVEDILOL [Concomitant]
     Active Substance: CARVEDILOL
     Dosage: 6.8 MG
     Dates: start: 20190201, end: 20200519
  42. CARVEDILOL [Concomitant]
     Active Substance: CARVEDILOL
     Dosage: UNK
     Dates: start: 20200520
  43. MIDAZOLAM HYDROCHLORIDE [Concomitant]
     Active Substance: MIDAZOLAM HYDROCHLORIDE
     Indication: Catheterisation cardiac
     Dosage: 6 MG, UNKNOWN
     Dates: start: 20190104, end: 20190104
  44. FENTANYL CITRATE [Concomitant]
     Active Substance: FENTANYL CITRATE
     Indication: Catheterisation cardiac
     Dosage: 100 UG, UNKNOWN
     Dates: start: 20190104, end: 20190104
  45. ULTIVA [Concomitant]
     Active Substance: REMIFENTANIL HYDROCHLORIDE
     Indication: Catheterisation cardiac
     Dosage: UNK, UNKNOWN
     Dates: start: 20190104, end: 20190104
  46. ROCURONIUM BROMIDE [Concomitant]
     Active Substance: ROCURONIUM BROMIDE
     Indication: Catheterisation cardiac
     Dosage: 45 MG, UNKNOWN
     Dates: start: 20190104, end: 20190104
  47. HEPARIN [Concomitant]
     Active Substance: HEPARIN SODIUM
     Indication: Product used for unknown indication
     Dosage: UNK
     Dates: start: 20191210, end: 20191218

REACTIONS (18)
  - Diarrhoea [Recovering/Resolving]
  - Pyrexia [Recovered/Resolved]
  - Pyrexia [Recovered/Resolved]
  - Cough [Recovering/Resolving]
  - Vomiting [Recovering/Resolving]
  - Vomiting [Recovered/Resolved]
  - Upper respiratory tract inflammation [Recovering/Resolving]
  - Pyrexia [Recovering/Resolving]
  - Upper respiratory tract inflammation [Recovering/Resolving]
  - Pyrexia [Recovering/Resolving]
  - Pyrexia [Recovering/Resolving]
  - Cough [Recovering/Resolving]
  - Rhinorrhoea [Recovering/Resolving]
  - Hypotension [Recovering/Resolving]
  - Hypotension [Recovered/Resolved]
  - Abdominal pain [Recovered/Resolved]
  - Hypotension [Recovered/Resolved]
  - Off label use [Unknown]

NARRATIVE: CASE EVENT DATE: 20181210
